FAERS Safety Report 23234898 (Version 7)
Quarter: 2024Q2

REPORT INFORMATION
  Report Type: Spontaneous
  Country: US (occurrence: US)
  Receive Date: 20231128
  Receipt Date: 20240423
  Transmission Date: 20240716
  Serious: Yes (Disabling, Other)
  Sender: FDA-Public Use
  Company Number: US-HORIZON THERAPEUTICS-HZN-2023-009794

PATIENT

DRUGS (30)
  1. TEPEZZA [Suspect]
     Active Substance: TEPROTUMUMAB-TRBW
     Indication: Endocrine ophthalmopathy
     Dosage: FIRST INFUSION 730 MG
     Route: 042
     Dates: start: 20210428
  2. TEPEZZA [Suspect]
     Active Substance: TEPROTUMUMAB-TRBW
     Dosage: SECOND INFUSION
     Route: 042
     Dates: start: 20210609
  3. TEPEZZA [Suspect]
     Active Substance: TEPROTUMUMAB-TRBW
     Dosage: THIRD INFUSION 1440 MG
     Route: 042
     Dates: start: 20210630
  4. TEPEZZA [Suspect]
     Active Substance: TEPROTUMUMAB-TRBW
     Dosage: FOURTH INFUSION 1423 MG
     Route: 042
     Dates: start: 20210721
  5. TEPEZZA [Suspect]
     Active Substance: TEPROTUMUMAB-TRBW
     Dosage: FIFTH INFUSION 1423 MG
     Route: 042
     Dates: start: 20210811
  6. TEPEZZA [Suspect]
     Active Substance: TEPROTUMUMAB-TRBW
     Dosage: SIXTH INFUSION
     Route: 042
     Dates: start: 20210901
  7. TEPEZZA [Suspect]
     Active Substance: TEPROTUMUMAB-TRBW
     Dosage: SEVENTH INFUSION
     Route: 042
     Dates: start: 20210922
  8. TEPEZZA [Suspect]
     Active Substance: TEPROTUMUMAB-TRBW
     Dosage: EIGHTH INFUSION 1421 MG
     Route: 042
     Dates: start: 20211013
  9. ASPIRIN [Concomitant]
     Active Substance: ASPIRIN
  10. Budesonide and Formoterol HFA [Concomitant]
  11. CALCIUM CARBONATE [Concomitant]
     Active Substance: CALCIUM CARBONATE
  12. VITAMIN D3 [Concomitant]
     Active Substance: CHOLECALCIFEROL
  13. CHLORTHALIDONE [Concomitant]
     Active Substance: CHLORTHALIDONE
  14. CLONIDINE [Concomitant]
     Active Substance: CLONIDINE
  15. CLONIDINE HYDROCHLORIDE [Concomitant]
     Active Substance: CLONIDINE HYDROCHLORIDE
  16. COENZYME Q10 [Concomitant]
     Active Substance: DIETARY SUPPLEMENT\UBIDECARENONE
  17. DRONABINOL [Concomitant]
     Active Substance: DRONABINOL
  18. LEVOTHYROXINE [Concomitant]
     Active Substance: LEVOTHYROXINE\LEVOTHYROXINE SODIUM
  19. LEVOTHYROXINE [Concomitant]
     Active Substance: LEVOTHYROXINE\LEVOTHYROXINE SODIUM
  20. LEVOTHYROXINE [Concomitant]
     Active Substance: LEVOTHYROXINE\LEVOTHYROXINE SODIUM
  21. METHOCARBAMOL [Concomitant]
     Active Substance: METHOCARBAMOL
  22. NABUMETONE [Concomitant]
     Active Substance: NABUMETONE
  23. OMEPRAZOLE [Concomitant]
     Active Substance: OMEPRAZOLE
  24. PREDNISONE [Concomitant]
     Active Substance: PREDNISONE
  25. SILDENAFIL [Concomitant]
     Active Substance: SILDENAFIL
  26. TOBRADEX [Concomitant]
     Active Substance: DEXAMETHASONE\TOBRAMYCIN
  27. PRAVASTATIN [Concomitant]
     Active Substance: PRAVASTATIN
  28. TRELEGY ELLIPTA [Concomitant]
     Active Substance: FLUTICASONE FUROATE\UMECLIDINIUM BROMIDE\VILANTEROL TRIFENATATE
  29. GLUCOSAMINE [Concomitant]
     Active Substance: GLUCOSAMINE
  30. ESOMEPRAZOLE [Concomitant]
     Active Substance: ESOMEPRAZOLE
     Dosage: UNK UNK, QD

REACTIONS (17)
  - Physical disability [Not Recovered/Not Resolved]
  - Deafness [Not Recovered/Not Resolved]
  - Injury [Not Recovered/Not Resolved]
  - Pain [Not Recovered/Not Resolved]
  - Nail dystrophy [Unknown]
  - Skin irritation [Unknown]
  - Emotional distress [Not Recovered/Not Resolved]
  - Product design issue [Unknown]
  - Economic problem [Not Recovered/Not Resolved]
  - Ear congestion [Unknown]
  - Eczema eyelids [Not Recovered/Not Resolved]
  - Off label use [Unknown]
  - Tinnitus [Unknown]
  - Alopecia [Unknown]
  - Hypoacusis [Not Recovered/Not Resolved]
  - Muscle spasms [Unknown]
  - Diplopia [Unknown]

NARRATIVE: CASE EVENT DATE: 20210101
